FAERS Safety Report 4647759-6 (Version None)
Quarter: 2005Q2

REPORT INFORMATION
  Report Type: 
  Country: None (occurrence: None)
  Receive Date: 20050426
  Receipt Date: 20050405
  Transmission Date: 20051028
  Serious: Yes (Hospitalization)
  Sender: FDA-Public Use
  Company Number: B0376676A

PATIENT
  Age: 82 Year
  Sex: Male

DRUGS (2)
  1. AUGMENTIN (AMOX.TRIHYD0+POT.CLAVULAN.) [Suspect]
  2. FUROSEMIDE [Suspect]

REACTIONS (5)
  - CLOSTRIDIAL INFECTION [None]
  - DEHYDRATION [None]
  - DIARRHOEA [None]
  - GENERAL PHYSICAL HEALTH DETERIORATION [None]
  - RENAL FAILURE ACUTE [None]
